FAERS Safety Report 20741601 (Version 4)
Quarter: 2022Q4

REPORT INFORMATION
  Report Type: Spontaneous
  Country: KW (occurrence: KW)
  Receive Date: 20220422
  Receipt Date: 20221026
  Transmission Date: 20230112
  Serious: Yes (Life-Threatening, Hospitalization, Other)
  Sender: FDA-Public Use
  Company Number: KW-JAZZ-2022-KW-012527

PATIENT
  Age: 9 Year
  Sex: Female

DRUGS (2)
  1. DEFIBROTIDE SODIUM [Suspect]
     Active Substance: DEFIBROTIDE SODIUM
     Indication: Venoocclusive disease
     Dosage: 6.25 MILLIGRAM/KILOGRAM/6H
     Route: 048
  2. DEFIBROTIDE SODIUM [Suspect]
     Active Substance: DEFIBROTIDE SODIUM
     Dosage: 5 MILLIGRAM, QD
     Route: 042
     Dates: start: 20220411, end: 20220412

REACTIONS (5)
  - Haemorrhage [Recovered/Resolved]
  - Swelling [Unknown]
  - Haematoma [Unknown]
  - Swelling face [Unknown]
  - Counterfeit product administered [Unknown]

NARRATIVE: CASE EVENT DATE: 20220411
